FAERS Safety Report 20635484 (Version 1)
Quarter: 2022Q1

REPORT INFORMATION
  Report Type: Report from Study
  Country: NL (occurrence: NL)
  Receive Date: 20220325
  Receipt Date: 20220325
  Transmission Date: 20220424
  Serious: Yes (Hospitalization)
  Sender: FDA-Public Use
  Company Number: NL-AstraZeneca-2022A119213

PATIENT
  Sex: Female
  Weight: 11.6 kg

DRUGS (5)
  1. SYNAGIS [Suspect]
     Active Substance: PALIVIZUMAB
     Indication: Heart disease congenital
     Route: 030
     Dates: start: 20210719
  2. SOTALOL [Concomitant]
     Active Substance: SOTALOL
     Indication: Product used for unknown indication
     Route: 065
  3. SPIRONOLACTONE [Concomitant]
     Active Substance: SPIRONOLACTONE
     Indication: Product used for unknown indication
     Route: 065
  4. BOSENTAN DISPER [Concomitant]
     Indication: Product used for unknown indication
     Route: 065
     Dates: start: 20201002, end: 20210504
  5. ZUURSTOF MEDICINAAL [Concomitant]
     Indication: Product used for unknown indication
     Route: 065

REACTIONS (3)
  - Oxygen saturation decreased [Unknown]
  - Pyrexia [Unknown]
  - Rhinorrhoea [Unknown]
